FAERS Safety Report 7377555-0 (Version None)
Quarter: 2011Q1

REPORT INFORMATION
  Report Type: 
  Country: None (occurrence: None)
  Receive Date: 20110315
  Receipt Date: 20110301
  Transmission Date: 20110831
  Serious: Yes (Other)
  Sender: FDA-Public Use
  Company Number: CIO11004011

PATIENT
  Sex: Female

DRUGS (2)
  1. CREST 3D WHITE WHITESTRIPS, ADVANCED VIVID DENTAL WHITENING KIT(HYDROG [Suspect]
     Dosage: STRIP, 1-2 TIMES A DAY, INTRAORAL
     Route: 048
     Dates: start: 20110213, end: 20110225
  2. CREST 3D WHITE VIVID TOOTHPASTE, RADIANT MINT(SODIUM FLUORIDE 0.243 %, [Suspect]
     Dosage: 1 APPLIC, 1 /DAY FOR 13 DAYS, INTRAORAL
     Route: 048
     Dates: start: 20110213, end: 20110225

REACTIONS (3)
  - THROAT TIGHTNESS [None]
  - URTICARIA [None]
  - PHARYNGEAL OEDEMA [None]
